FAERS Safety Report 15365093 (Version 1)
Quarter: 2018Q3

REPORT INFORMATION
  Report Type: Spontaneous
  Country: FR (occurrence: FR)
  Receive Date: 20180910
  Receipt Date: 20180910
  Transmission Date: 20181010
  Serious: Yes (Other)
  Sender: FDA-Public Use
  Company Number: FR-CONCORDIA PHARMACEUTICALS INC.-GSH201706-003519

PATIENT
  Age: 49 Year
  Sex: Female
  Weight: 94 kg

DRUGS (1)
  1. PLAQUENIL [Suspect]
     Active Substance: HYDROXYCHLOROQUINE SULFATE
     Indication: SYSTEMIC LUPUS ERYTHEMATOSUS
     Dosage: 18 YEARS 9 MONTHS 17 DAYS 12 HRS
     Route: 048
     Dates: start: 1998, end: 201610

REACTIONS (2)
  - Visual field defect [Unknown]
  - Maculopathy [Unknown]

NARRATIVE: CASE EVENT DATE: 20160928
